FAERS Safety Report 5627929-0 (Version None)
Quarter: 2008Q1

REPORT INFORMATION
  Report Type: 
  Country: None (occurrence: None)
  Receive Date: 20080215
  Receipt Date: 20080204
  Transmission Date: 20080703
  Serious: Yes (Other)
  Sender: FDA-Public Use
  Company Number: US-JNJFOC-20080201029

PATIENT
  Sex: Male
  Weight: 83.92 kg

DRUGS (5)
  1. ULTRAM [Suspect]
     Dosage: PM
     Route: 048
  2. ULTRAM [Suspect]
     Indication: BACK PAIN
     Dosage: AM
     Route: 048
  3. FLECTOR [Suspect]
     Indication: BACK PAIN
     Dosage: ONE PATCH EVERY 12 HOURS
     Route: 061
  4. DICLOFENAC SODIUM [Suspect]
     Indication: BACK PAIN
     Route: 048
  5. CADUET [Concomitant]
     Indication: HYPERTENSION
     Dosage: ONE TABLET DAILY
     Route: 048

REACTIONS (2)
  - ABDOMINAL PAIN [None]
  - GASTROINTESTINAL HAEMORRHAGE [None]
